FAERS Safety Report 21999657 (Version 1)
Quarter: 2023Q1

REPORT INFORMATION
  Report Type: Report from Study
  Country: CN (occurrence: CN)
  Receive Date: 20230216
  Receipt Date: 20230216
  Transmission Date: 20230418
  Serious: Yes (Hospitalization)
  Sender: FDA-Public Use
  Company Number: CN-MACROGENICS-2022000136

PATIENT
  Age: 53 Year
  Sex: Male
  Weight: 64.5 kg

DRUGS (23)
  1. MARGETUXIMAB [Suspect]
     Active Substance: MARGETUXIMAB
     Indication: Gastric cancer
     Dosage: 15 MILLIGRAM/KILOGRAM, Q3WEEKS
     Route: 042
     Dates: start: 20211110, end: 20211110
  2. MARGETUXIMAB [Suspect]
     Active Substance: MARGETUXIMAB
     Dosage: 15 MILLIGRAM/KILOGRAM, Q3WEEKS
     Route: 042
     Dates: start: 20220601, end: 20220601
  3. TEBOTELIMAB [Suspect]
     Active Substance: TEBOTELIMAB
     Indication: Gastric cancer
     Dosage: 600 MILLIGRAM, Q3WEEKS
     Route: 042
     Dates: start: 20211110, end: 20211110
  4. TEBOTELIMAB [Suspect]
     Active Substance: TEBOTELIMAB
     Dosage: 600 MILLIGRAM, Q3WEEKS
     Route: 042
     Dates: start: 20220601, end: 20220601
  5. CAPECITABINE [Concomitant]
     Active Substance: CAPECITABINE
     Indication: Gastric cancer
     Dosage: 1000 MILLIGRAM/SQ. METER, BID
     Route: 048
     Dates: start: 20211110, end: 20211125
  6. CAPECITABINE [Concomitant]
     Active Substance: CAPECITABINE
     Dosage: 1000 MILLIGRAM/SQ. METER, BID
     Route: 048
     Dates: start: 20220511, end: 20220525
  7. OXALIPLATIN [Concomitant]
     Active Substance: OXALIPLATIN
     Indication: Gastric cancer
     Dosage: 130 MILLIGRAM/SQ. METER, Q3WEEKS
     Route: 042
     Dates: start: 20211110, end: 20211110
  8. OXALIPLATIN [Concomitant]
     Active Substance: OXALIPLATIN
     Dosage: 130 MILLIGRAM/SQ. METER, Q3WEEKS
     Route: 042
     Dates: start: 20220511, end: 20220511
  9. BICYCLOL [Concomitant]
     Active Substance: BICYCLOL
     Indication: Prophylaxis
     Dosage: 25 MILLIGRAM, TID
     Route: 048
     Dates: start: 20211110
  10. OMEPRAZOLE [Concomitant]
     Active Substance: OMEPRAZOLE
     Indication: Abdominal pain upper
     Dosage: 2 CAPSULES, QD
     Route: 048
     Dates: start: 20211101
  11. IBUPROFEN [Concomitant]
     Active Substance: IBUPROFEN
     Indication: Premedication
     Dosage: 400 MILLIGRAM, QD
     Route: 048
     Dates: start: 20220511, end: 20220511
  12. IBUPROFEN [Concomitant]
     Active Substance: IBUPROFEN
     Dosage: 400 MILLIGRAM, QD
     Route: 048
     Dates: start: 20220601, end: 20220601
  13. DIPHENHYDRAMINE HYDROCHLORIDE [Concomitant]
     Active Substance: DIPHENHYDRAMINE HYDROCHLORIDE
     Indication: Premedication
     Dosage: 50 MILLIGRAM, QD
     Route: 048
     Dates: start: 20220511, end: 20220511
  14. DIPHENHYDRAMINE HYDROCHLORIDE [Concomitant]
     Active Substance: DIPHENHYDRAMINE HYDROCHLORIDE
     Dosage: 50 MILLIGRAM, QD
     Route: 048
     Dates: start: 20220601, end: 20220601
  15. RANITIDINE HYDROCHLORIDE [Concomitant]
     Active Substance: RANITIDINE HYDROCHLORIDE
     Indication: Premedication
     Dosage: 300 MILLIGRAM, QD
     Route: 048
     Dates: start: 20220511, end: 20220511
  16. RANITIDINE HYDROCHLORIDE [Concomitant]
     Active Substance: RANITIDINE HYDROCHLORIDE
     Dosage: 300 MILLIGRAM, QD
     Route: 048
     Dates: start: 20220601, end: 20220601
  17. DEXAMETHASONE SODIUM PHOSPHATE [Concomitant]
     Active Substance: DEXAMETHASONE SODIUM PHOSPHATE
     Indication: Premedication
     Dosage: 10 MILLIGRAM, QD
     Route: 042
     Dates: start: 20220511, end: 20220511
  18. DEXAMETHASONE SODIUM PHOSPHATE [Concomitant]
     Active Substance: DEXAMETHASONE SODIUM PHOSPHATE
     Dosage: 10 MILLIGRAM, QD
     Route: 042
     Dates: start: 20220601, end: 20220601
  19. VITAMIN B COMPLEX [Concomitant]
     Active Substance: CYANOCOBALAMIN\DEXPANTHENOL\NIACINAMIDE\PYRIDOXINE HYDROCHLORIDE\RIBOFLAVIN 5^-PHOSPHATE SODIUM\THIA
     Indication: Hand-foot-and-mouth disease
     Dosage: 0.55 GRAM, QD
     Route: 048
     Dates: start: 20220219, end: 20220710
  20. TROPISETRON HYDROCHLORIDE [Concomitant]
     Active Substance: TROPISETRON HYDROCHLORIDE
     Indication: Prophylaxis of nausea and vomiting
     Dosage: 100 MILLILITER, QD
     Route: 042
     Dates: start: 20220511, end: 20220511
  21. OMEPRAZOLE SODIUM [Concomitant]
     Active Substance: OMEPRAZOLE SODIUM
     Indication: Prophylaxis
     Dosage: 40 MILLIGRAM, QD
     Route: 042
     Dates: start: 20220511, end: 20220511
  22. DIISOPROPYLAMINE DICHLORACETATE [Concomitant]
     Indication: Prophylaxis
     Dosage: 80 MILLIGRAM, QD
     Route: 042
     Dates: start: 20220511, end: 20220511
  23. VITAMINS [Concomitant]
     Active Substance: VITAMINS
     Indication: Vitamin supplementation
     Dosage: 200 MILLIGRAM, QD
     Route: 042
     Dates: start: 20220511, end: 20220511

REACTIONS (1)
  - Gastrointestinal haemorrhage [Not Recovered/Not Resolved]

NARRATIVE: CASE EVENT DATE: 20220610
